FAERS Safety Report 8680141 (Version 13)
Quarter: 2020Q4

REPORT INFORMATION
  Report Type: Other
  Country: GB (occurrence: GB)
  Receive Date: 20120724
  Receipt Date: 20201207
  Transmission Date: 20210114
  Serious: Yes (Death, Other)
  Sender: FDA-Public Use
  Company Number: GB-ROCHE-1088739

PATIENT

DRUGS (4)
  1. CLOPIDOGREL [Suspect]
     Active Substance: CLOPIDOGREL BISULFATE
     Indication: ISCHAEMIC STROKE
     Route: 065
  2. ASPIRIN. [Suspect]
     Active Substance: ASPIRIN
     Indication: ISCHAEMIC STROKE
     Route: 065
  3. DIPYRIDAMOLE. [Suspect]
     Active Substance: DIPYRIDAMOLE
     Indication: ISCHAEMIC STROKE
     Route: 065
  4. ALTEPLASE. [Suspect]
     Active Substance: ALTEPLASE
     Indication: ISCHAEMIC STROKE
     Route: 042

REACTIONS (7)
  - Haemorrhage [Fatal]
  - Brain oedema [Fatal]
  - Cerebrovascular accident [Fatal]
  - Hypersensitivity [Unknown]
  - Haemorrhage intracranial [Fatal]
  - Cerebral infarction [Fatal]
  - Drug interaction [Unknown]
